FAERS Safety Report 6046340-4 (Version None)
Quarter: 2009Q1

REPORT INFORMATION
  Report Type: 
  Country: None (occurrence: None)
  Receive Date: 20090122
  Receipt Date: 20090112
  Transmission Date: 20090719
  Serious: Yes (Death, Hospitalization)
  Sender: FDA-Public Use
  Company Number: GB-AMGEN-US291357

PATIENT
  Sex: Female
  Weight: 54 kg

DRUGS (13)
  1. ENBREL [Suspect]
     Indication: DRUG USE FOR UNKNOWN INDICATION
     Route: 058
     Dates: start: 20070816, end: 20080621
  2. FOLIC ACID [Concomitant]
     Route: 048
  3. ALENDRONIC ACID [Concomitant]
     Route: 048
  4. ADCAL D3 [Concomitant]
     Dosage: 1 TABLET, FREQUENCY UNSPECIFIED
     Route: 048
  5. GLUCOSAMINE [Concomitant]
     Route: 048
  6. ENOXAPARIN SODIUM [Concomitant]
     Dosage: 40MG, FREQUENCY UNSPECIFED
     Route: 058
  7. SULFASALAZINE [Concomitant]
     Route: 048
  8. TRAMADOL HCL [Concomitant]
     Route: 048
  9. ONDANSETRON HYDROCHLORIDE [Concomitant]
     Route: 048
  10. CYCLIZINE [Concomitant]
     Route: 048
  11. ACETAMINOPHEN [Concomitant]
     Route: 048
  12. METHOTREXATE [Concomitant]
     Route: 048
  13. LACTULOSE [Concomitant]
     Dosage: 5-10ML, PRN
     Route: 048

REACTIONS (2)
  - BRONCHOPNEUMONIA [None]
  - FALL [None]
